FAERS Safety Report 7135961-3 (Version None)
Quarter: 2010Q4

REPORT INFORMATION
  Report Type: 
  Country: None (occurrence: None)
  Receive Date: 20101204
  Receipt Date: 20101115
  Transmission Date: 20110411
  Serious: Yes (Hospitalization)
  Sender: FDA-Public Use
  Company Number: US-BAYER-201016882NA

PATIENT

DRUGS (6)
  1. YAZ [Suspect]
     Route: 048
     Dates: start: 20070901, end: 20071001
  2. MOTRIN [Concomitant]
     Dosage: 20 PLUS YEARS
  3. NSAID'S [Concomitant]
     Dosage: 20 PLUS YEARS
  4. LISINOPRIL [Concomitant]
     Route: 048
  5. NORVASC [Concomitant]
     Route: 048
  6. METRONIDAZOLE [Concomitant]
     Dosage: 0.75%
     Route: 067

REACTIONS (2)
  - DEEP VEIN THROMBOSIS [None]
  - PULMONARY EMBOLISM [None]
